FAERS Safety Report 7953774-7 (Version None)
Quarter: 2011Q4

REPORT INFORMATION
  Report Type: 
  Country: None (occurrence: None)
  Receive Date: 20111202
  Receipt Date: 20111130
  Transmission Date: 20120403
  Serious: Yes (Other)
  Sender: FDA-Public Use
  Company Number: US-PFIZER INC-2011229178

PATIENT
  Age: 4 Year
  Sex: Female
  Weight: 16.327 kg

DRUGS (1)
  1. CHILDREN'S ADVIL [Suspect]
     Indication: PYREXIA
     Dosage: UNK
     Route: 048
     Dates: start: 20110925, end: 20110925

REACTIONS (4)
  - DRUG INEFFECTIVE [None]
  - VOMITING [None]
  - BODY TEMPERATURE INCREASED [None]
  - DEHYDRATION [None]
